FAERS Safety Report 9993017 (Version 1)
Quarter: 2014Q1

REPORT INFORMATION
  Report Type: Report from Study
  Country: US (occurrence: US)
  Receive Date: 20140310
  Receipt Date: 20140310
  Transmission Date: 20141002
  Serious: No
  Sender: FDA-Public Use
  Company Number: US-ABBVIE-13P-163-1082081-00

PATIENT
  Age: 21 Year
  Sex: Female

DRUGS (2)
  1. LUPRON DEPOT [Suspect]
     Indication: ENDOMETRIOSIS
     Dates: start: 20130125
  2. UNKNOWN ADD BACK THERAPY [Concomitant]
     Indication: PRODUCT USED FOR UNKNOWN INDICATION
     Dates: start: 20130125

REACTIONS (3)
  - Ovarian cyst ruptured [Recovering/Resolving]
  - Pelvic pain [Unknown]
  - Pelvic pain [Unknown]
